FAERS Safety Report 9670656 (Version 2)
Quarter: 2014Q1

REPORT INFORMATION
  Report Type: Spontaneous
  Country: US (occurrence: US)
  Receive Date: 20131106
  Receipt Date: 20140306
  Transmission Date: 20141002
  Serious: Yes (Hospitalization)
  Sender: FDA-Public Use
  Company Number: US-BRISTOL-MYERS SQUIBB COMPANY-19715788

PATIENT
  Age: 36 Year
  Sex: Male
  Weight: 121.08 kg

DRUGS (6)
  1. BYETTA [Suspect]
     Indication: TYPE 2 DIABETES MELLITUS
     Route: 058
  2. METFORMIN HCL [Suspect]
  3. BUPROPION [Concomitant]
  4. CRESTOR [Concomitant]
  5. XANAX [Concomitant]
  6. WELLBUTRIN [Concomitant]

REACTIONS (4)
  - Pyrexia [Unknown]
  - Blood glucose increased [Unknown]
  - Dizziness [Unknown]
  - Drug dose omission [Unknown]
